FAERS Safety Report 11401931 (Version 1)
Quarter: 2015Q3

REPORT INFORMATION
  Report Type: Spontaneous
  Country: US (occurrence: US)
  Receive Date: 20150821
  Receipt Date: 20150821
  Transmission Date: 20151125
  Serious: No
  Sender: FDA-Public Use
  Company Number: US-ROCHE-1304664

PATIENT
  Sex: Female

DRUGS (10)
  1. VICTRELIS [Suspect]
     Active Substance: BOCEPREVIR
     Indication: CHRONIC HEPATITIS C
     Route: 048
     Dates: start: 20130928
  2. RIBASPHERE [Suspect]
     Active Substance: RIBAVIRIN
     Indication: CHRONIC HEPATITIS C
     Dosage: DIVIDED DOSES
     Route: 048
     Dates: start: 20130828
  3. IBUPROFEN. [Concomitant]
     Active Substance: IBUPROFEN
  4. PHENERGAN [Concomitant]
     Active Substance: PROMETHAZINE HYDROCHLORIDE
     Indication: NAUSEA
     Route: 065
  5. ALBUTEROL. [Concomitant]
     Active Substance: ALBUTEROL
  6. WELLBUTRIN [Concomitant]
     Active Substance: BUPROPION HYDROCHLORIDE
  7. RIBASPHERE [Suspect]
     Active Substance: RIBAVIRIN
     Route: 048
  8. PEGASYS [Suspect]
     Active Substance: PEGINTERFERON ALFA-2A
     Indication: CHRONIC HEPATITIS C
     Route: 058
     Dates: start: 20130828
  9. PEGASYS [Suspect]
     Active Substance: PEGINTERFERON ALFA-2A
     Indication: LIVER DISORDER
     Route: 058
     Dates: start: 20130927
  10. HYDROCHLOROTHIAZIDE. [Concomitant]
     Active Substance: HYDROCHLOROTHIAZIDE

REACTIONS (18)
  - Pain [Unknown]
  - Mood swings [Recovered/Resolved]
  - Vision blurred [Unknown]
  - Dry skin [Not Recovered/Not Resolved]
  - Lacrimal disorder [Unknown]
  - Discomfort [Unknown]
  - Dry mouth [Unknown]
  - Erythema [Unknown]
  - Alopecia [Unknown]
  - Influenza like illness [Unknown]
  - Anaemia [Recovered/Resolved]
  - Pruritus [Unknown]
  - Gastric disorder [Unknown]
  - Gastrointestinal viral infection [Recovered/Resolved]
  - Pruritus [Not Recovered/Not Resolved]
  - Rash [Unknown]
  - Vertigo [Unknown]
  - Anorectal discomfort [Unknown]
